FAERS Safety Report 9995372 (Version 1)
Quarter: 2014Q1

REPORT INFORMATION
  Report Type: Spontaneous
  Country: US (occurrence: None)
  Receive Date: 20140214
  Receipt Date: 20140214
  Transmission Date: 20141002
  Serious: Yes (Other)
  Sender: FDA-Public Use
  Company Number: US-013599

PATIENT
  Age: 68 Year
  Sex: Female

DRUGS (1)
  1. PREPOPIK [Suspect]
     Indication: BOWEL PREPARATION
     Dosage: 4:30 PM FIRST DOSE ORAL
     Dates: start: 20131107, end: 20131107

REACTIONS (2)
  - Abdominal distension [None]
  - Drug ineffective [None]
